FAERS Safety Report 5720013-7 (Version None)
Quarter: 2008Q2

REPORT INFORMATION
  Report Type: 
  Country: None (occurrence: None)
  Receive Date: 20080424
  Receipt Date: 20080411
  Transmission Date: 20081010
  Serious: Yes (Hospitalization, Other)
  Sender: FDA-Public Use
  Company Number: US022565

PATIENT
  Age: 46 Year
  Sex: Female
  Weight: 79.8331 kg

DRUGS (15)
  1. ACTIQ [Suspect]
     Indication: CANCER PAIN
     Dosage: BUCCAL
     Route: 002
     Dates: start: 20071007
  2. FENTANYL [Concomitant]
  3. METHADONE HCL [Concomitant]
  4. GABAPENTIN [Concomitant]
  5. MYLANTA [Concomitant]
  6. ZOLEDRONIC ACID [Concomitant]
  7. ALPRAZOLAM [Concomitant]
  8. SERTRALINE HYDROCHLORIDE [Concomitant]
  9. METOPROLOL TARTRATE [Concomitant]
  10. ENALAPRIL MALEATE [Concomitant]
  11. LOPERAMIDE HCL [Concomitant]
  12. DYAZIDE [Concomitant]
  13. PROCRIT [Concomitant]
  14. NEXIUM [Concomitant]
  15. XELODA [Concomitant]

REACTIONS (7)
  - BACTERIAL INFECTION [None]
  - BLOOD CULTURE POSITIVE [None]
  - HAEMOGLOBIN DECREASED [None]
  - LOSS OF CONSCIOUSNESS [None]
  - MENTAL STATUS CHANGES [None]
  - PROTEUS INFECTION [None]
  - URINARY TRACT INFECTION [None]
